FAERS Safety Report 21924518 (Version 1)
Quarter: 2023Q1

REPORT INFORMATION
  Report Type: Spontaneous
  Country: IL (occurrence: IL)
  Receive Date: 20230130
  Receipt Date: 20230130
  Transmission Date: 20230418
  Serious: Yes (Other)
  Sender: FDA-Public Use
  Company Number: IL-STERISCIENCE B.V.-2023-ST-000211

PATIENT
  Age: 81 Year
  Sex: Male

DRUGS (3)
  1. OXACILLIN [Suspect]
     Active Substance: OXACILLIN SODIUM
     Indication: Staphylococcal infection
     Dosage: UNK
  2. RIFAMPIN [Suspect]
     Active Substance: RIFAMPIN
     Indication: Staphylococcal infection
     Dosage: UNK
  3. COUMADIN [Suspect]
     Active Substance: WARFARIN SODIUM
     Indication: Atrial fibrillation
     Dosage: UNK

REACTIONS (1)
  - Toxic epidermal necrolysis [None]
